FAERS Safety Report 4629505-5 (Version None)
Quarter: 2005Q2

REPORT INFORMATION
  Report Type: 
  Country: None (occurrence: None)
  Receive Date: 20050405
  Receipt Date: 20050324
  Transmission Date: 20051028
  Serious: Yes (Other)
  Sender: FDA-Public Use
  Company Number: 2005049697

PATIENT
  Age: 17 Year
  Sex: Female
  Weight: 90.7194 kg

DRUGS (4)
  1. ZITHROMAX [Suspect]
     Indication: BRONCHITIS
     Dosage: 500 MG (500 MG, QD), ORAL
     Route: 048
     Dates: start: 20050321, end: 20050301
  2. ACETAMINOPHEN [Concomitant]
  3. SERTRALINE HYDROCHLORIDE (SERTRALINE  HYDROCHLORIDE0 [Concomitant]
  4. MEDINITE (DEXTROMETHORPHAN HYDROBROMIDE, DOXYLAMINE SUCCINATE, EPHEDRI [Concomitant]

REACTIONS (3)
  - DYSURIA [None]
  - OESOPHAGEAL PAIN [None]
  - STEVENS-JOHNSON SYNDROME [None]
